FAERS Safety Report 7000153-5 (Version None)
Quarter: 2010Q3

REPORT INFORMATION
  Report Type: 
  Country: None (occurrence: None)
  Receive Date: 20100920
  Receipt Date: 20091211
  Transmission Date: 20110219
  Serious: No
  Sender: FDA-Public Use
  Company Number: US-ASTRAZENECA-2009SE31482

PATIENT
  Age: 16 Year
  Sex: Female
  Weight: 40.8 kg

DRUGS (3)
  1. SEROQUEL XR [Suspect]
     Indication: BIPOLAR DISORDER
     Route: 048
  2. LITHIUM [Concomitant]
  3. ABILIFY [Concomitant]

REACTIONS (3)
  - ABNORMAL BEHAVIOUR [None]
  - ILL-DEFINED DISORDER [None]
  - TARDIVE DYSKINESIA [None]
